FAERS Safety Report 6788282-2 (Version None)
Quarter: 2010Q2

REPORT INFORMATION
  Report Type: 
  Country: None (occurrence: None)
  Receive Date: 20100623
  Receipt Date: 20080214
  Transmission Date: 20101027
  Serious: No
  Sender: FDA-Public Use
  Company Number: US-PFIZER INC-2008014039

PATIENT
  Age: 17 Year
  Weight: 90.72 kg

DRUGS (1)
  1. GEODON [Suspect]

REACTIONS (1)
  - DRUG EFFECT DECREASED [None]
